FAERS Safety Report 19498616 (Version 1)
Quarter: 2021Q3

REPORT INFORMATION
  Report Type: Spontaneous
  Country: US (occurrence: US)
  Receive Date: 20210706
  Receipt Date: 20210706
  Transmission Date: 20211014
  Serious: Yes (Other)
  Sender: FDA-Public Use
  Company Number: US-ASTRAZENECA-2021A573894

PATIENT
  Sex: Male
  Weight: 65.8 kg

DRUGS (6)
  1. POTASSIUM [Concomitant]
     Active Substance: POTASSIUM
  2. BRILINTA [Suspect]
     Active Substance: TICAGRELOR
     Indication: STENT PLACEMENT
     Route: 048
     Dates: start: 2013
  3. ASPIRIN. [Concomitant]
     Active Substance: ASPIRIN
  4. BRILINTA [Suspect]
     Active Substance: TICAGRELOR
     Indication: MYOCARDIAL INFARCTION
     Route: 048
     Dates: start: 2013
  5. LIPITOR [Concomitant]
     Active Substance: ATORVASTATIN CALCIUM
  6. WARFARIN [Concomitant]
     Active Substance: WARFARIN

REACTIONS (13)
  - Chromaturia [Recovered/Resolved]
  - Product residue present [Unknown]
  - Hypoxia [Recovered/Resolved]
  - Blood pressure decreased [Recovered/Resolved]
  - Thrombosis [Recovered/Resolved]
  - Depressed level of consciousness [Recovered/Resolved]
  - Bone disorder [Unknown]
  - Nausea [Recovered/Resolved]
  - Chronic obstructive pulmonary disease [Unknown]
  - Nephrolithiasis [Recovered/Resolved]
  - Cardiac failure [Not Recovered/Not Resolved]
  - Ejection fraction [Unknown]
  - Pain [Unknown]

NARRATIVE: CASE EVENT DATE: 2016
